FAERS Safety Report 7974466-4 (Version None)
Quarter: 2011Q4

REPORT INFORMATION
  Report Type: 
  Country: None (occurrence: None)
  Receive Date: 20111213
  Receipt Date: 20111205
  Transmission Date: 20120403
  Serious: Yes (Other)
  Sender: FDA-Public Use
  Company Number: US-ASTRAZENECA-2011SE36681

PATIENT
  Age: 37 Year
  Sex: Male

DRUGS (1)
  1. NEXIUM [Suspect]
     Route: 048

REACTIONS (6)
  - MALAISE [None]
  - DRUG DOSE OMISSION [None]
  - POLYP [None]
  - REGURGITATION [None]
  - VOMITING [None]
  - ABDOMINAL DISCOMFORT [None]
